FAERS Safety Report 13550195 (Version 2)
Quarter: 2017Q2

REPORT INFORMATION
  Report Type: Spontaneous
  Country: US (occurrence: US)
  Receive Date: 20170516
  Receipt Date: 20170523
  Transmission Date: 20170830
  Serious: Yes (Life-Threatening)
  Sender: FDA-Public Use
  Company Number: PHHY2017US067209

PATIENT
  Age: 55 Year
  Sex: Female

DRUGS (1)
  1. METHADONE [Suspect]
     Active Substance: METHADONE HYDROCHLORIDE
     Indication: PRODUCT USED FOR UNKNOWN INDICATION
     Dosage: 30 DF, UNK
     Route: 065

REACTIONS (3)
  - Posterior reversible encephalopathy syndrome [Recovering/Resolving]
  - Intentional overdose [Unknown]
  - Suicide attempt [Unknown]
